FAERS Safety Report 12333831 (Version 1)
Quarter: 2016Q2

REPORT INFORMATION
  Report Type: Spontaneous
  Country: CA (occurrence: CA)
  Receive Date: 20160504
  Receipt Date: 20160504
  Transmission Date: 20160815
  Serious: Yes (Other)
  Sender: FDA-Public Use
  Company Number: CA-JNJFOC-20160501335

PATIENT
  Age: 87 Year
  Sex: Male
  Weight: 87 kg

DRUGS (3)
  1. XARELTO [Suspect]
     Active Substance: RIVAROXABAN
     Indication: DEEP VEIN THROMBOSIS
     Route: 048
  2. XARELTO [Suspect]
     Active Substance: RIVAROXABAN
     Indication: EMBOLISM VENOUS
     Route: 048
  3. ACETAMINOPHEN. [Concomitant]
     Active Substance: ACETAMINOPHEN
     Route: 065

REACTIONS (6)
  - Gait disturbance [Recovered/Resolved]
  - Musculoskeletal stiffness [Recovered/Resolved]
  - N-terminal prohormone brain natriuretic peptide abnormal [Recovered/Resolved]
  - Motor dysfunction [Recovered/Resolved]
  - Red blood cell sedimentation rate increased [Recovered/Resolved]
  - Muscular weakness [Recovered/Resolved]
